FAERS Safety Report 9100328 (Version 1)
Quarter: 2013Q1

REPORT INFORMATION
  Report Type: Spontaneous
  Country: JP (occurrence: JP)
  Receive Date: 20130215
  Receipt Date: 20130215
  Transmission Date: 20140127
  Serious: Yes (Death, Other)
  Sender: FDA-Public Use
  Company Number: JP-CELGENEUS-087-21880-12120647

PATIENT
  Sex: 0

DRUGS (3)
  1. REVLIMID [Suspect]
     Indication: PLASMA CELL MYELOMA
     Dosage: 5-20 MG
     Route: 048
  2. REVLIMID [Suspect]
     Dosage: 25-125 MG (MAINTENANCE)
     Route: 048
  3. DEXAMETHASONE [Concomitant]
     Indication: PLASMA CELL MYELOMA
     Route: 065

REACTIONS (4)
  - Death [Fatal]
  - Pancytopenia [Unknown]
  - Plasma cell myeloma [Unknown]
  - Neuropathy peripheral [Unknown]
